FAERS Safety Report 13657271 (Version 2)
Quarter: 2017Q2

REPORT INFORMATION
  Report Type: Report from Study
  Country: TW (occurrence: TW)
  Receive Date: 20170615
  Receipt Date: 20170622
  Transmission Date: 20170830
  Serious: Yes (Hospitalization, Other)
  Sender: FDA-Public Use
  Company Number: TW-JNJFOC-20170610262

PATIENT
  Age: 65 Year
  Sex: Male
  Weight: 66 kg

DRUGS (3)
  1. STELARA [Suspect]
     Active Substance: USTEKINUMAB
     Indication: PSORIASIS
     Route: 058
     Dates: start: 20160411, end: 20170313
  2. FOLIC ACID. [Concomitant]
     Active Substance: FOLIC ACID
     Indication: PSORIASIS
     Route: 048
     Dates: start: 20160122
  3. METHOTREXATE. [Concomitant]
     Active Substance: METHOTREXATE
     Indication: PSORIASIS
     Route: 048
     Dates: start: 20160122

REACTIONS (9)
  - Hepatic mass [Not Recovered/Not Resolved]
  - Polyp [Unknown]
  - Gastrooesophageal reflux disease [Unknown]
  - Liver disorder [Unknown]
  - Gastritis [Unknown]
  - Renal cyst [Unknown]
  - Rectal polyp [Unknown]
  - Large intestine polyp [Unknown]
  - Cholangiocarcinoma [Unknown]

NARRATIVE: CASE EVENT DATE: 20170523
